FAERS Safety Report 11191563 (Version 1)
Quarter: 2015Q2

REPORT INFORMATION
  Report Type: Spontaneous
  Country: US (occurrence: None)
  Receive Date: 20150612
  Receipt Date: 20150612
  Transmission Date: 20150821
  Serious: Yes (Disabling, Other)
  Sender: FDA-Public Use
  Company Number: None

PATIENT
  Age: 35 Year
  Sex: Female
  Weight: 113.4 kg

DRUGS (10)
  1. LUNESTA [Concomitant]
     Active Substance: ESZOPICLONE
  2. GABAPENTIN. [Concomitant]
     Active Substance: GABAPENTIN
  3. SUBOXONE [Concomitant]
     Active Substance: BUPRENORPHINE HYDROCHLORIDE\NALOXONE HYDROCHLORIDE
  4. CELECOXIB 200MG [Suspect]
     Active Substance: CELECOXIB
     Indication: ARTHRITIS
     Dosage: 3 PILLS
     Route: 048
     Dates: start: 20141220, end: 20150424
  5. CELEBREX [Concomitant]
     Active Substance: CELECOXIB
  6. CLONIDINE. [Concomitant]
     Active Substance: CLONIDINE
  7. ACETAMINOPHEN. [Concomitant]
     Active Substance: ACETAMINOPHEN
  8. TIZANIDINE (TIZANIDINE) [Concomitant]
     Active Substance: TIZANIDINE
  9. LAMICTAL [Concomitant]
     Active Substance: LAMOTRIGINE
  10. LAP-BAND [Concomitant]

REACTIONS (9)
  - Impaired work ability [None]
  - Product quality issue [None]
  - Activities of daily living impaired [None]
  - Gait disturbance [None]
  - Product substitution issue [None]
  - Mobility decreased [None]
  - Quality of life decreased [None]
  - Drug ineffective [None]
  - Pain [None]

NARRATIVE: CASE EVENT DATE: 20150425
